FAERS Safety Report 14157642 (Version 1)
Quarter: 2017Q4

REPORT INFORMATION
  Report Type: Spontaneous
  Country: JP (occurrence: JP)
  Receive Date: 20171103
  Receipt Date: 20171103
  Transmission Date: 20180321
  Serious: Yes (Hospitalization)
  Sender: FDA-Public Use
  Company Number: JP-ASTRAZENECA-2017SE42346

PATIENT
  Age: 310 Month
  Sex: Female

DRUGS (2)
  1. SEROQUEL [Suspect]
     Active Substance: QUETIAPINE FUMARATE
     Indication: SCHIZOPHRENIA
     Route: 048
     Dates: start: 200411
  2. LONASEN [Concomitant]
     Active Substance: BLONANSERIN

REACTIONS (4)
  - Gestational hypertension [Recovered/Resolved]
  - Schizophrenia [Not Recovered/Not Resolved]
  - Intentional underdose [Unknown]
  - Maternal exposure during pregnancy [Recovered/Resolved]

NARRATIVE: CASE EVENT DATE: 200411
